FAERS Safety Report 23394602 (Version 6)
Quarter: 2024Q2

REPORT INFORMATION
  Report Type: Report from Study
  Country: US (occurrence: US)
  Receive Date: 20240112
  Receipt Date: 20240618
  Transmission Date: 20240716
  Serious: Yes (Other)
  Sender: FDA-Public Use
  Company Number: US-ACADIA PHARMACEUTICALS INC.-ACA-2023-TRF-005943

PATIENT
  Age: 11 Year
  Sex: Female

DRUGS (14)
  1. DAYBUE [Suspect]
     Active Substance: TROFINETIDE
     Indication: Rett syndrome
     Dosage: 40 MILLILITER, BID
     Route: 048
     Dates: start: 20231212
  2. DAYBUE [Suspect]
     Active Substance: TROFINETIDE
     Dosage: INCREASED THE DOSAGE
     Route: 048
  3. DAYBUE [Suspect]
     Active Substance: TROFINETIDE
     Dosage: 40 MILLILITRE, BID
     Route: 048
  4. CLOBAZAM [Concomitant]
     Active Substance: CLOBAZAM
     Dosage: 5 MILLILITER, BID (2.5 MG/ML)
     Dates: start: 20161011
  5. DIVALPROEX SODIUM [Concomitant]
     Active Substance: DIVALPROEX SODIUM
     Dosage: 125 MILLIGRAM, QD
     Dates: start: 20220623
  6. EPIDIOLEX [Concomitant]
     Active Substance: CANNABIDIOL
     Dosage: 2.5 MILLILITER, BID (100MG/ML)
     Route: 048
     Dates: start: 20191106
  7. RUFINAMIDE [Concomitant]
     Active Substance: RUFINAMIDE
     Dosage: 9 MILLILITER, BID (40 MG/ML)
     Dates: start: 20180517
  8. VITAMIN B COMPLEX [Concomitant]
     Active Substance: CYANOCOBALAMIN\DEXPANTHENOL\NIACINAMIDE\PYRIDOXINE HYDROCHLORIDE\RIBOFLAVIN 5^-PHOSPHATE SODIUM\THIA
     Dosage: 100, 2 HERBS
     Dates: start: 2019
  9. CETIRIZINE HYDROCHLORIDE [Concomitant]
     Active Substance: CETIRIZINE HYDROCHLORIDE
     Dosage: 10 MILLIGRAM
     Dates: start: 20180508
  10. CLONAZEPAM [Concomitant]
     Active Substance: CLONAZEPAM
     Dosage: 1 MILLIGRAM PRN
     Dates: start: 20190912
  11. DIAZEPAM [Concomitant]
     Active Substance: DIAZEPAM
     Dosage: 7.5 MILLIGRAM, PRN
     Route: 054
     Dates: start: 20160319
  12. FLUTICASONE PROPIONATE [Concomitant]
     Active Substance: FLUTICASONE PROPIONATE
     Dosage: 50 MICROGRAM, QD
     Dates: start: 20190411
  13. MELATONIN [Concomitant]
     Active Substance: MELATONIN
     Dosage: 3 MILLIGRAM, QHS, OTC
  14. MONTELUKAST [Concomitant]
     Active Substance: MONTELUKAST SODIUM
     Dosage: 5 MILLIGRAM,QHS
     Dates: start: 20180223

REACTIONS (7)
  - Seizure [Recovered/Resolved]
  - Seizure [Recovered/Resolved]
  - Weight gain poor [Not Recovered/Not Resolved]
  - Influenza [Recovered/Resolved]
  - Diarrhoea [Not Recovered/Not Resolved]
  - Anxiety [Not Recovered/Not Resolved]
  - Vomiting [Not Recovered/Not Resolved]

NARRATIVE: CASE EVENT DATE: 20231201
